FAERS Safety Report 8591734-6 (Version None)
Quarter: 2012Q3

REPORT INFORMATION
  Report Type: 
  Country: None (occurrence: None)
  Receive Date: 20120814
  Receipt Date: 20120809
  Transmission Date: 20120928
  Serious: Yes (Other)
  Sender: FDA-Public Use
  Company Number: PHHY2012MX069748

PATIENT
  Sex: Male

DRUGS (6)
  1. PLAXIS [Concomitant]
  2. ASPIRIN [Concomitant]
  3. NORVASC [Concomitant]
  4. ETIEN [Concomitant]
  5. DIOVAN [Suspect]
     Indication: HYPERTENSION
     Dosage: 1 DF (320MG), DAILY
     Dates: start: 20120731
  6. VIAGRA [Concomitant]

REACTIONS (1)
  - PROTEIN TOTAL INCREASED [None]
